FAERS Safety Report 10957044 (Version 1)
Quarter: 2015Q1

REPORT INFORMATION
  Report Type: Spontaneous
  Country: FR (occurrence: FR)
  Receive Date: 20150326
  Receipt Date: 20150326
  Transmission Date: 20150721
  Serious: Yes (Other)
  Sender: FDA-Public Use
  Company Number: FR-GILEAD-2015-0144469

PATIENT
  Age: 51 Year
  Weight: 74 kg

DRUGS (3)
  1. AIROMIR                            /00139501/ [Concomitant]
     Indication: ASTHMA
     Dosage: 100 ?G, UNK
     Route: 065
     Dates: start: 2011
  2. SERETIDE [Concomitant]
     Active Substance: FLUTICASONE FUROATE\SALMETEROL XINAFOATE
     Indication: ASTHMA
     Dosage: 2 DF, UNK
     Route: 065
     Dates: start: 2011
  3. VIREAD [Suspect]
     Active Substance: TENOFOVIR DISOPROXIL FUMARATE
     Indication: HEPATITIS B
     Dosage: 245 MG, UNK
     Route: 065
     Dates: start: 20130213

REACTIONS (2)
  - Intraductal proliferative breast lesion [Unknown]
  - Invasive ductal breast carcinoma [Unknown]

NARRATIVE: CASE EVENT DATE: 20140715
